FAERS Safety Report 5057988-8 (Version None)
Quarter: 2006Q3

REPORT INFORMATION
  Report Type: 
  Country: None (occurrence: None)
  Receive Date: 20060721
  Receipt Date: 20060503
  Transmission Date: 20061208
  Serious: No
  Sender: FDA-Public Use
  Company Number: US-GLAXOSMITHKLINE-A0604220A

PATIENT
  Age: 74 Year
  Sex: Male

DRUGS (2)
  1. AVANDIA [Suspect]
     Dosage: 2MG FOUR TIMES PER DAY
     Route: 048
     Dates: start: 20050901, end: 20051101
  2. METFORMIN [Suspect]
     Dosage: 500MG THREE TIMES PER DAY
     Dates: start: 20050901, end: 20051101

REACTIONS (2)
  - BLOOD GLUCOSE FLUCTUATION [None]
  - STOMACH DISCOMFORT [None]
